FAERS Safety Report 6749856-8 (Version None)
Quarter: 2010Q2

REPORT INFORMATION
  Report Type: 
  Country: None (occurrence: None)
  Receive Date: 20100601
  Receipt Date: 20100525
  Transmission Date: 20101027
  Serious: Yes (Death)
  Sender: FDA-Public Use
  Company Number: JP-BRISTOL-MYERS SQUIBB COMPANY-15050313

PATIENT
  Age: 66 Year
  Sex: Male
  Weight: 54 kg

DRUGS (3)
  1. ERBITUX [Suspect]
     Indication: COLON CANCER
     Dosage: 24JUL09:600MG (1ST) 31JUL-7AUG09:390 MG (7D) (DOSE REDUCED) 14-21AUG09:400 MG (7D)
     Route: 042
     Dates: start: 20090724, end: 20090821
  2. CHLOR-TRIMETON [Concomitant]
     Indication: PREMEDICATION
     Route: 042
     Dates: start: 20090724, end: 20090807
  3. DECADRON [Concomitant]
     Indication: PREMEDICATION
     Dates: start: 20090724, end: 20090807

REACTIONS (1)
  - HEPATIC FAILURE [None]
